FAERS Safety Report 9766913 (Version 1)
Quarter: 2013Q4

REPORT INFORMATION
  Report Type: Spontaneous
  Country: US (occurrence: US)
  Receive Date: 20131217
  Receipt Date: 20131217
  Transmission Date: 20140711
  Serious: No
  Sender: FDA-Public Use
  Company Number: US-GLAXOSMITHKLINE-A1034300A

PATIENT
  Age: 79 Year
  Sex: Male
  Weight: 81.8 kg

DRUGS (10)
  1. VOTRIENT [Suspect]
     Indication: RENAL CANCER
     Dosage: 200MG PER DAY
     Route: 048
  2. AMLODIPINE [Concomitant]
     Dosage: 10MG PER DAY
     Route: 048
  3. CETIRIZINE [Concomitant]
     Dosage: 10MG PER DAY
     Route: 048
  4. FINASTERIDE [Concomitant]
     Dosage: 5MG PER DAY
     Route: 048
  5. METOPROLOL [Concomitant]
     Dosage: 50MG TWICE PER DAY
     Route: 048
  6. PRAVASTATIN [Concomitant]
     Dosage: 2MG PER DAY
     Route: 048
  7. PRILOSEC [Concomitant]
     Dosage: 20MG TWICE PER DAY
     Route: 048
  8. TELMISARTAN [Concomitant]
     Dosage: 80MG PER DAY
     Route: 048
  9. TRAMADOL [Concomitant]
     Route: 048
  10. WARFARIN [Concomitant]
     Dosage: 5MG PER DAY
     Route: 048

REACTIONS (5)
  - Gingival pain [Recovering/Resolving]
  - Decreased appetite [Recovering/Resolving]
  - Asthenia [Recovering/Resolving]
  - Diarrhoea [Recovering/Resolving]
  - Mucosal inflammation [Recovering/Resolving]
